FAERS Safety Report 16033858 (Version 1)
Quarter: 2019Q1

REPORT INFORMATION
  Report Type: Spontaneous
  Country: BG (occurrence: BG)
  Receive Date: 20190305
  Receipt Date: 20190305
  Transmission Date: 20190418
  Serious: Yes (Other)
  Sender: FDA-Public Use
  Company Number: BG-009507513-1902BGR012316

PATIENT
  Sex: Male

DRUGS (1)
  1. KEYTRUDA [Suspect]
     Active Substance: PEMBROLIZUMAB
     Indication: SMALL CELL LUNG CANCER
     Dosage: UNK
     Dates: start: 2019, end: 2019

REACTIONS (4)
  - Hepatitis B reactivation [Unknown]
  - Malignant neoplasm progression [Unknown]
  - Product use in unapproved indication [Unknown]
  - Hepatitis toxic [Not Recovered/Not Resolved]

NARRATIVE: CASE EVENT DATE: 2019
